FAERS Safety Report 4808503-2 (Version None)
Quarter: 2005Q4

REPORT INFORMATION
  Report Type: 
  Country: None (occurrence: None)
  Receive Date: 20051025
  Receipt Date: 20051019
  Transmission Date: 20060501
  Serious: Yes (Other)
  Sender: FDA-Public Use
  Company Number: 2005PK01929

PATIENT
  Age: 704 Month
  Sex: Female
  Weight: 61 kg

DRUGS (4)
  1. ARIMIDEX [Suspect]
     Indication: BREAST CANCER FEMALE
     Route: 048
     Dates: start: 20010303, end: 20051004
  2. NOLVADEX [Suspect]
     Indication: BREAST CANCER FEMALE
     Route: 048
     Dates: start: 19990302, end: 20010302
  3. FOSAMAX [Concomitant]
  4. CALCIUM GLUCONATE [Concomitant]

REACTIONS (2)
  - OSTEOPOROSIS [None]
  - TOOTH LOSS [None]
